FAERS Safety Report 6105739-8 (Version None)
Quarter: 2009Q1

REPORT INFORMATION
  Report Type: 
  Country: None (occurrence: None)
  Receive Date: 20090220
  Receipt Date: 20090220
  Transmission Date: 20090719
  Serious: Yes (Other)
  Sender: FDA-Public Use
  Company Number: None

PATIENT
  Age: 65 Year
  Sex: Female

DRUGS (1)
  1. GAS-X ESTSTR CHEWABLE TABS CHERRY CREME (NCH)(SMITHICONE) CHEWABLE TAB [Suspect]
     Indication: FLATULENCE
     Dosage: 3 TABLETS, IN 3 HOURS, ORAL
     Route: 048

REACTIONS (3)
  - DIABETES MELLITUS [None]
  - INCORRECT DOSE ADMINISTERED [None]
  - MYOCARDIAL INFARCTION [None]
